FAERS Safety Report 7438333-7 (Version None)
Quarter: 2011Q2

REPORT INFORMATION
  Report Type: 
  Country: None (occurrence: None)
  Receive Date: 20110418
  Receipt Date: 20110411
  Transmission Date: 20111010
  Serious: Yes (Death, Hospitalization)
  Sender: FDA-Public Use
  Company Number: 2011079677

PATIENT
  Age: 76 Year
  Sex: Female

DRUGS (9)
  1. MARCUMAR [Suspect]
     Indication: ATRIAL FIBRILLATION
     Dosage: 3 MG, AS NEEDED, ORAL
     Route: 048
     Dates: start: 20101230, end: 20110108
  2. SELIPRAN (PRAVASTATIN SODIUM) [Concomitant]
  3. AZATHIOPRINE [Concomitant]
  4. CALCIMAGON-D3 (CALCIUM CARBONATE, COLECALCIFEROL) [Concomitant]
  5. BISOPROLOL FUMARATE [Concomitant]
  6. LEVOTHYROXINE SODIUM [Concomitant]
  7. FRAGMIN [Suspect]
     Indication: ATRIAL FIBRILLATION
     Dosage: 15000 IU, 1X/DAY, SUBCUTANEOUS
     Route: 058
     Dates: start: 20101230, end: 20110108
  8. NORVASC [Concomitant]
  9. KCL TAB [Concomitant]

REACTIONS (9)
  - DIVERTICULITIS [None]
  - CARDIAC ARREST [None]
  - LACTIC ACIDOSIS [None]
  - CARDIAC FAILURE [None]
  - RENAL FAILURE ACUTE [None]
  - CARDIOVASCULAR INSUFFICIENCY [None]
  - MUSCLE HAEMORRHAGE [None]
  - SHOCK HAEMORRHAGIC [None]
  - ABDOMINAL PAIN [None]
